FAERS Safety Report 8172095-3 (Version None)
Quarter: 2012Q1

REPORT INFORMATION
  Report Type: 
  Country: None (occurrence: None)
  Receive Date: 20120228
  Receipt Date: 20120214
  Transmission Date: 20120608
  Serious: Yes (Hospitalization)
  Sender: FDA-Public Use
  Company Number: FR-ASTRAZENECA-2012SE03345

PATIENT
  Age: 18903 Day
  Sex: Male
  Weight: 75 kg

DRUGS (7)
  1. QUETIAPINE FUMARATE [Suspect]
     Indication: SCHIZOPHRENIA
     Route: 048
     Dates: start: 20111113, end: 20111121
  2. HALDOL [Concomitant]
     Dates: start: 20010101
  3. RISPERDAL [Concomitant]
     Indication: SCHIZOPHRENIA
     Dates: start: 20010101
  4. ESCITALOPRAM OXALATE [Concomitant]
     Indication: SCHIZOPHRENIA
  5. EFFEXOR [Concomitant]
     Indication: SCHIZOPHRENIA
     Dates: start: 20010101
  6. XANAX [Concomitant]
     Indication: SCHIZOPHRENIA
     Dates: start: 20010101
  7. TERCIAN [Concomitant]

REACTIONS (3)
  - SEBORRHOEIC DERMATITIS [None]
  - CONSTIPATION [None]
  - EXTRAPYRAMIDAL DISORDER [None]
